FAERS Safety Report 7955663-0 (Version None)
Quarter: 2011Q4

REPORT INFORMATION
  Report Type: 
  Country: None (occurrence: None)
  Receive Date: 20111204
  Receipt Date: 20110919
  Transmission Date: 20120403
  Serious: No
  Sender: FDA-Public Use
  Company Number: US-ALLERGAN-1112450US

PATIENT
  Age: 46 Year
  Sex: Female

DRUGS (1)
  1. ACZONE [Suspect]
     Indication: PRODUCT USED FOR UNKNOWN INDICATION
     Dosage: ONE APPLICATION ON TARGET AREAS
     Route: 061
     Dates: start: 20110910, end: 20110918

REACTIONS (1)
  - DRUG INEFFECTIVE [None]
